FAERS Safety Report 12424607 (Version 1)
Quarter: 2016Q2

REPORT INFORMATION
  Report Type: Spontaneous
  Country: US (occurrence: None)
  Receive Date: 20160531
  Receipt Date: 20160531
  Transmission Date: 20160815
  Serious: Yes (Hospitalization)
  Sender: FDA-Public Use
  Company Number: None

PATIENT
  Age: 27 Year
  Sex: Female

DRUGS (1)
  1. ARIPIPRAZOLE 10MG [Suspect]
     Active Substance: ARIPIPRAZOLE
     Route: 048
     Dates: start: 20160518, end: 20160529

REACTIONS (3)
  - Tremor [None]
  - Extra dose administered [None]
  - Drug dose omission [None]

NARRATIVE: CASE EVENT DATE: 20160529
